FAERS Safety Report 5064179-3 (Version None)
Quarter: 2006Q3

REPORT INFORMATION
  Report Type: 
  Country: None (occurrence: None)
  Receive Date: 20060728
  Receipt Date: 20060411
  Transmission Date: 20061208
  Serious: No
  Sender: FDA-Public Use
  Company Number: US-GLAXOSMITHKLINE-A0601377A

PATIENT
  Age: 5 Week
  Sex: Female

DRUGS (2)
  1. ZANTAC [Suspect]
     Dosage: 2.5ML TWICE PER DAY
     Route: 048
     Dates: start: 20060320, end: 20060410
  2. NO CONCURRENT MEDICATION [Concomitant]

REACTIONS (3)
  - HEART RATE IRREGULAR [None]
  - MEDICATION ERROR [None]
  - OVERDOSE [None]
